FAERS Safety Report 7286950-X (Version None)
Quarter: 2011Q1

REPORT INFORMATION
  Report Type: 
  Country: None (occurrence: None)
  Receive Date: 20110211
  Receipt Date: 20110204
  Transmission Date: 20110831
  Serious: Yes (Hospitalization, Other)
  Sender: FDA-Public Use
  Company Number: US-BIOGENIDEC-2011BI004517

PATIENT
  Age: 66 Year
  Sex: Female
  Weight: 67 kg

DRUGS (1)
  1. AVONEX [Suspect]
     Indication: MULTIPLE SCLEROSIS
     Route: 030
     Dates: start: 20061221

REACTIONS (4)
  - NERVE COMPRESSION [None]
  - BLOOD GLUCOSE DECREASED [None]
  - PAIN [None]
  - DEPRESSED LEVEL OF CONSCIOUSNESS [None]
